FAERS Safety Report 8955006 (Version 1)
Quarter: 2012Q4

REPORT INFORMATION
  Report Type: Report from Study
  Country: ES (occurrence: ES)
  Receive Date: 20121207
  Receipt Date: 20121207
  Transmission Date: 20130627
  Serious: Yes (Death, Hospitalization)
  Sender: FDA-Public Use
  Company Number: ES-BAXTER-2012BAX025879

PATIENT
  Age: 57 Year
  Sex: Female
  Weight: 75.5 kg

DRUGS (20)
  1. GENOXAL [Suspect]
     Indication: NON-HODGKIN^S LYMPHOMA
     Route: 065
     Dates: start: 20090917, end: 20090917
  2. DOXORUBICIN [Suspect]
     Indication: DRUG USE FOR UNKNOWN INDICATION
     Route: 065
     Dates: start: 20090917, end: 20090917
  3. PREDNISONE [Suspect]
     Indication: DRUG USE FOR UNKNOWN INDICATION
     Route: 065
     Dates: start: 20090917, end: 20090921
  4. VINCRISTINE [Suspect]
     Indication: DRUG USE FOR UNKNOWN INDICATION
     Route: 065
     Dates: start: 20090917, end: 20090917
  5. OBINUTUZUMAB [Suspect]
     Indication: NON-HODGKIN^S LYMPHOMA
     Route: 042
     Dates: start: 20090730, end: 20090916
  6. RO 5072759 [Suspect]
     Route: 042
     Dates: start: 20090819
  7. AMLODIPINE [Concomitant]
     Indication: DRUG USE FOR UNKNOWN INDICATION
     Route: 065
     Dates: start: 200908, end: 20090913
  8. LEVOFLOXACINO [Concomitant]
     Indication: DRUG USE FOR UNKNOWN INDICATION
     Route: 065
     Dates: start: 20090901, end: 20090910
  9. ITRACONAZOLE [Concomitant]
     Indication: DRUG USE FOR UNKNOWN INDICATION
     Route: 065
     Dates: start: 20090901, end: 20090913
  10. G-CSF [Concomitant]
     Indication: DRUG USE FOR UNKNOWN INDICATION
     Route: 065
     Dates: start: 20090926
  11. ACICLOVIR [Concomitant]
     Indication: FEBRILE NEUTROPENIA
     Route: 065
     Dates: start: 20090901, end: 20090913
  12. ACICLOVIR [Concomitant]
     Indication: FUNGAL INFECTION
     Route: 065
     Dates: start: 20090914, end: 20090926
  13. FILGRASTIM [Concomitant]
     Indication: FEBRILE NEUTROPENIA
     Route: 065
     Dates: start: 20090901, end: 20090913
  14. FILGRASTIM [Concomitant]
     Indication: FUNGAL INFECTION
     Route: 065
     Dates: start: 20090914, end: 20090926
  15. CEFEPIME [Concomitant]
     Indication: FEBRILE NEUTROPENIA
     Route: 065
     Dates: start: 20090914
  16. CEFEPIME [Concomitant]
     Indication: NEUTROPENIA
  17. POSACONAZOLE [Concomitant]
     Indication: DRUG USE FOR UNKNOWN INDICATION
     Route: 065
     Dates: start: 20090901
  18. POSACONAZOLE [Concomitant]
     Route: 065
     Dates: start: 20090926
  19. AMOXICILLIN\CLAVULANIC ACID [Concomitant]
     Indication: FEBRILE NEUTROPENIA
     Route: 065
     Dates: start: 20090914
  20. AMOXICILLIN\CLAVULANIC ACID [Concomitant]
     Indication: NEUTROPENIA

REACTIONS (2)
  - Pneumonia fungal [Fatal]
  - Febrile neutropenia [Not Recovered/Not Resolved]
